FAERS Safety Report 16899554 (Version 1)
Quarter: 2019Q4

REPORT INFORMATION
  Report Type: Spontaneous
  Country: GB (occurrence: GB)
  Receive Date: 20191009
  Receipt Date: 20191009
  Transmission Date: 20200122
  Serious: Yes (Other)
  Sender: FDA-Public Use
  Company Number: GB-MYLANLABS-2019M1094121

PATIENT
  Age: 48 Year
  Sex: Female
  Weight: 80 kg

DRUGS (8)
  1. NAPROXEN. [Suspect]
     Active Substance: NAPROXEN
     Indication: PRODUCT USED FOR UNKNOWN INDICATION
     Dosage: 500 MILLIGRAM
     Dates: start: 20190703
  2. NAPROXEN. [Concomitant]
     Active Substance: NAPROXEN
     Dosage: AFTER FOOD
     Dates: start: 20190403, end: 20190703
  3. LANSOPRAZOLE. [Concomitant]
     Active Substance: LANSOPRAZOLE
     Dosage: 1 DOSAGE FORM, QD
     Dates: start: 20180808
  4. FUSIDIC ACID [Concomitant]
     Active Substance: FUSIDIC ACID
     Dosage: 3- 4 TIMES DAILY
     Dates: start: 20190620, end: 20190627
  5. GABAPENTIN. [Concomitant]
     Active Substance: GABAPENTIN
     Dosage: 4 DOSAGE FORM, QD
     Dates: start: 20180808
  6. AMLODIPINE [Concomitant]
     Active Substance: AMLODIPINE BESYLATE
     Dosage: 1 DOSAGE FORM, QD
     Dates: start: 20190321
  7. MOMETASONE [Concomitant]
     Active Substance: MOMETASONE
     Dosage: SPRAYS
     Dates: start: 20190521, end: 20190618
  8. FERROUS SULFATE. [Concomitant]
     Active Substance: FERROUS SULFATE
     Dosage: 3 DOSAGE FORM, QD
     Dates: start: 20180927

REACTIONS (1)
  - Porphyria non-acute [Unknown]

NARRATIVE: CASE EVENT DATE: 20190703
